FAERS Safety Report 18134702 (Version 1)
Quarter: 2020Q3

REPORT INFORMATION
  Report Type: Spontaneous
  Country: CA (occurrence: CA)
  Receive Date: 20200811
  Receipt Date: 20200811
  Transmission Date: 20201103
  Serious: Yes (Hospitalization)
  Sender: FDA-Public Use
  Company Number: CA-CELLTRION-2020-CA-001484

PATIENT
  Age: 75 Year
  Sex: Female

DRUGS (16)
  1. NAPROXEN. [Suspect]
     Active Substance: NAPROXEN
     Indication: ARTHRALGIA
  2. ATORVASTATIN [Concomitant]
     Active Substance: ATORVASTATIN
  3. ACETAMINOPHEN. [Concomitant]
     Active Substance: ACETAMINOPHEN
  4. CLONAZEPAM. [Concomitant]
     Active Substance: CLONAZEPAM
  5. ZOPLICONE [Concomitant]
     Active Substance: ZOPICLONE
  6. CALCIUM CARBONATE. [Concomitant]
     Active Substance: CALCIUM CARBONATE
  7. BRINZOLAMIDE/TIMOLOL [Suspect]
     Active Substance: BRINZOLAMIDE\TIMOLOL
     Indication: GLAUCOMA
  8. VITAMIN D3 [Concomitant]
     Active Substance: CHOLECALCIFEROL
  9. TELMISARTAN. [Concomitant]
     Active Substance: TELMISARTAN
  10. IPRATROPIUM [Concomitant]
     Active Substance: IPRATROPIUM
  11. MULTIVITAMIN [Concomitant]
     Active Substance: VITAMINS
  12. GABAPENTIN. [Suspect]
     Active Substance: GABAPENTIN
     Indication: ARTHRALGIA
  13. PREGABALIN (NON?SPECIFIC) [Suspect]
     Active Substance: PREGABALIN
     Indication: ARTHRALGIA
  14. LATANOPROST. [Concomitant]
     Active Substance: LATANOPROST
  15. VITAMIN B6 [Concomitant]
     Active Substance: PYRIDOXINE HYDROCHLORIDE
  16. ESTRADIOL. [Concomitant]
     Active Substance: ESTRADIOL

REACTIONS (1)
  - Toxic epidermal necrolysis [Recovered/Resolved]
